FAERS Safety Report 8617281-0 (Version None)
Quarter: 2012Q3

REPORT INFORMATION
  Report Type: 
  Country: None (occurrence: None)
  Receive Date: 20120823
  Receipt Date: 20120820
  Transmission Date: 20120928
  Serious: No
  Sender: FDA-Public Use
  Company Number: US-ASTRAZENECA-2010SE11087

PATIENT
  Age: 70 Year
  Sex: Female
  Weight: 52.2 kg

DRUGS (6)
  1. DIOVAN [Concomitant]
  2. CRESTOR [Suspect]
     Route: 048
  3. ASPIRIN [Concomitant]
  4. ASPIRIN [Concomitant]
     Indication: CARDIOVASCULAR DISORDER
  5. LOSARTAN POTASSIUM [Concomitant]
     Indication: HYPERTENSION
  6. CRESTOR [Suspect]
     Indication: LOW DENSITY LIPOPROTEIN INCREASED
     Route: 048
     Dates: start: 20091028

REACTIONS (3)
  - ARTHRALGIA [None]
  - BURNING SENSATION [None]
  - PAIN IN EXTREMITY [None]
